FAERS Safety Report 6778906-8 (Version None)
Quarter: 2010Q2

REPORT INFORMATION
  Report Type: 
  Country: None (occurrence: None)
  Receive Date: 20100618
  Receipt Date: 20100617
  Transmission Date: 20101027
  Serious: Yes (Life-Threatening, Other)
  Sender: FDA-Public Use
  Company Number: NL-ROXANE LABORATORIES, INC.-2010-DE-02999GD

PATIENT
  Age: 75 Year
  Sex: Male

DRUGS (8)
  1. ISOSORBIDE MONONITRATE [Suspect]
     Dosage: 6000 MG
     Route: 048
  2. DIGOXIN [Suspect]
     Dosage: 7.125 MG
     Route: 048
  3. FUROSEMIDE [Suspect]
     Dosage: 800 MG
     Route: 048
  4. AMLODIPINE [Suspect]
     Dosage: 300 MG
     Route: 048
  5. SOTALOL [Suspect]
     Dosage: 7200 MG
     Route: 048
  6. ACENOCOUMAROL [Suspect]
     Dosage: 98 MG
     Route: 048
  7. ATORVASTATIN [Suspect]
     Dosage: 1200 MG
     Route: 048
  8. PERINDOPRIL [Suspect]
     Dosage: 200 MG
     Route: 048

REACTIONS (8)
  - ANURIA [None]
  - CARDIOGENIC SHOCK [None]
  - DISORIENTATION [None]
  - DRUG INTERACTION [None]
  - ELECTROCARDIOGRAM QT PROLONGED [None]
  - MULTIPLE DRUG OVERDOSE [None]
  - RENAL FAILURE [None]
  - VENTRICULAR ARRHYTHMIA [None]
